FAERS Safety Report 4283743-2 (Version None)
Quarter: 2004Q1

REPORT INFORMATION
  Report Type: 
  Country: None (occurrence: None)
  Receive Date: 20040202
  Receipt Date: 20030814
  Transmission Date: 20041129
  Serious: Yes (Death)
  Sender: FDA-Public Use
  Company Number: WAES 0308USA01616

PATIENT
  Age: 57 Year
  Sex: Male
  Weight: 80 kg

DRUGS (18)
  1. ALLOPURINOL [Concomitant]
     Indication: GOUT
  2. CELEXA [Concomitant]
     Dates: start: 20001030
  3. COLCHICINE [Concomitant]
  4. INDOCIN [Concomitant]
     Indication: GOUT
     Route: 048
  5. BACTROBAN [Concomitant]
  6. SERZONE [Concomitant]
  7. PREDNISONE [Concomitant]
     Indication: GOUT
     Route: 048
  8. VIOXX [Suspect]
     Indication: PAIN
     Route: 048
  9. VIOXX [Suspect]
     Route: 048
     Dates: end: 20010606
  10. VIOXX [Suspect]
     Route: 048
     Dates: start: 20000101
  11. VIOXX [Suspect]
     Route: 048
     Dates: start: 20010101
  12. VIOXX [Suspect]
     Route: 048
  13. VIOXX [Suspect]
     Route: 048
     Dates: end: 20010606
  14. VIOXX [Suspect]
     Route: 048
     Dates: start: 20000101
  15. VIOXX [Suspect]
     Route: 048
     Dates: start: 20010101
  16. ULTRAM [Concomitant]
     Indication: PAIN
     Dates: end: 20010606
  17. TRAZODONE HYDROCHLORIDE [Concomitant]
     Dates: start: 20010216, end: 20010606
  18. KENALOG [Concomitant]
     Route: 051
     Dates: start: 20020122

REACTIONS (22)
  - ARTERIOSCLEROSIS [None]
  - ARTHRALGIA [None]
  - ATHEROSCLEROSIS [None]
  - BURSITIS [None]
  - CARDIOMEGALY [None]
  - CORONARY ARTERY THROMBOSIS [None]
  - DEPRESSION [None]
  - DERMATITIS CONTACT [None]
  - EPICONDYLITIS [None]
  - EYE SWELLING [None]
  - HEPATIC CYST [None]
  - HEPATIC STEATOSIS [None]
  - HYPERTENSIVE CARDIOMYOPATHY [None]
  - LUMBAR RADICULOPATHY [None]
  - MUSCLE STRAIN [None]
  - MUSCULAR WEAKNESS [None]
  - NEPHROSCLEROSIS [None]
  - NERVE INJURY [None]
  - NEUROPATHY [None]
  - RENAL DISORDER [None]
  - SLEEP DISORDER [None]
  - SPINAL DISORDER [None]
